FAERS Safety Report 17606851 (Version 2)
Quarter: 2020Q3

REPORT INFORMATION
  Report Type: Spontaneous
  Country: JP (occurrence: JP)
  Receive Date: 20200331
  Receipt Date: 20200717
  Transmission Date: 20201102
  Serious: Yes (Death, Hospitalization, Disabling, Other)
  Sender: FDA-Public Use
  Company Number: JP-009507513-2002JPN002998J

PATIENT
  Age: 84 Year
  Sex: Male
  Weight: 64 kg

DRUGS (12)
  1. SENNOSIDES. [Concomitant]
     Active Substance: SENNOSIDES
     Dosage: UNK
     Route: 065
     Dates: end: 20191224
  2. LIXIANA [Concomitant]
     Active Substance: EDOXABAN TOSYLATE
     Indication: ATRIAL FIBRILLATION
     Dosage: 30 MILLIGRAM, QD
     Route: 048
     Dates: start: 20191224, end: 20191226
  3. CARBOPLATIN. [Concomitant]
     Active Substance: CARBOPLATIN
     Indication: NON-SMALL CELL LUNG CANCER
     Dosage: 430 MILLIGRAM, Q3W
     Route: 041
     Dates: start: 20191203, end: 20191203
  4. PILSICAINIDE HYDROCHLORIDE [Concomitant]
     Active Substance: PILSICAINIDE HYDROCHLORIDE
     Indication: TACHYARRHYTHMIA
     Dosage: 50 MILLIGRAM, TID
     Route: 048
     Dates: start: 20191107, end: 20191231
  5. ANORO ELLIPTA [Concomitant]
     Active Substance: UMECLIDINIUM BROMIDE\VILANTEROL TRIFENATATE
     Indication: CHRONIC OBSTRUCTIVE PULMONARY DISEASE
     Dosage: 1INHALATION/DAY
     Dates: start: 20191108
  6. DEXART [Concomitant]
     Active Substance: DEXAMETHASONE SODIUM PHOSPHATE
     Indication: VOMITING
     Dosage: 6.6 MILLIGRAM, QD
     Route: 041
     Dates: start: 20191217, end: 20191217
  7. AMBROXOL HYDROCHLORIDE [Concomitant]
     Active Substance: AMBROXOL HYDROCHLORIDE
     Indication: SPUTUM DECREASED
     Dosage: 45 MILLIGRAM, QD
     Route: 048
     Dates: start: 20191107
  8. MAGNESIUM OXIDE. [Concomitant]
     Active Substance: MAGNESIUM OXIDE
     Indication: CONSTIPATION
     Dosage: 500 MILLIGRAM, TID
     Route: 048
     Dates: start: 20191115, end: 20191224
  9. ABRAXANE [Concomitant]
     Active Substance: PACLITAXEL
     Indication: NON-SMALL CELL LUNG CANCER
     Dosage: 130 MILLIGRAM, QW
     Route: 041
     Dates: start: 20191203, end: 20191217
  10. AMLODIPINE [Concomitant]
     Active Substance: AMLODIPINE BESYLATE
     Indication: HYPERTENSION
     Dosage: 5 MILLIGRAM, QD
     Route: 048
     Dates: start: 20191219, end: 20191222
  11. CANDESARTAN CILEXETIL. [Concomitant]
     Active Substance: CANDESARTAN CILEXETIL
     Indication: HYPERTENSION
     Dosage: 8 MILLIGRAM, QD
     Route: 048
     Dates: start: 20191219, end: 20191222
  12. KEYTRUDA [Suspect]
     Active Substance: PEMBROLIZUMAB
     Indication: NON-SMALL CELL LUNG CANCER
     Dosage: 200 MILLIGRAM, Q3W
     Route: 041
     Dates: start: 20191203, end: 20191203

REACTIONS (3)
  - Malignant neoplasm progression [Fatal]
  - Fulminant type 1 diabetes mellitus [Not Recovered/Not Resolved]
  - Thyroiditis [Not Recovered/Not Resolved]

NARRATIVE: CASE EVENT DATE: 20191231
